FAERS Safety Report 9746544 (Version 4)
Quarter: 2014Q1

REPORT INFORMATION
  Report Type: Spontaneous
  Country: BR (occurrence: BR)
  Receive Date: 20131211
  Receipt Date: 20140331
  Transmission Date: 20141002
  Serious: Yes (Hospitalization, Other)
  Sender: FDA-Public Use
  Company Number: PHHY2013BR145096

PATIENT
  Age: 40 Year
  Sex: Female

DRUGS (3)
  1. DIOVAN [Suspect]
     Indication: HYPERTENSION
     Dosage: 160 MG, UNK
     Route: 048
  2. DIOVAN [Suspect]
     Dosage: 240 MG, (160 MG + 80 MG)
     Route: 048
  3. PROPANOLOL [Concomitant]
     Indication: HYPERTENSION
     Dosage: 1 DF, (40 MG) DAILY
     Route: 048

REACTIONS (9)
  - Migraine [Recovered/Resolved]
  - Blood pressure inadequately controlled [Recovered/Resolved]
  - Vision blurred [Not Recovered/Not Resolved]
  - Head discomfort [Not Recovered/Not Resolved]
  - Headache [Not Recovered/Not Resolved]
  - Dizziness [Not Recovered/Not Resolved]
  - Nausea [Not Recovered/Not Resolved]
  - Blood pressure increased [Recovering/Resolving]
  - Vertigo [Not Recovered/Not Resolved]
